FAERS Safety Report 8401361-9 (Version None)
Quarter: 2012Q2

REPORT INFORMATION
  Report Type: 
  Country: None (occurrence: None)
  Receive Date: 20120529
  Receipt Date: 20120516
  Transmission Date: 20120825
  Serious: Yes (Life-Threatening, Hospitalization)
  Sender: FDA-Public Use
  Company Number: 2012AT000239

PATIENT
  Age: 20 Year
  Sex: Female
  Weight: 102 kg

DRUGS (1)
  1. THEOPHYLLINE [Suspect]
     Indication: PRODUCT USED FOR UNKNOWN INDICATION
     Dosage: 20 GM, 1X, PO
     Route: 048

REACTIONS (6)
  - DRUG LEVEL INCREASED [None]
  - SUPRAVENTRICULAR TACHYCARDIA [None]
  - HYPOKALAEMIA [None]
  - MATERNAL EXPOSURE DURING PREGNANCY [None]
  - ABORTION INDUCED [None]
  - HAEMODIALYSIS [None]
